FAERS Safety Report 16694018 (Version 1)
Quarter: 2019Q3

REPORT INFORMATION
  Report Type: Spontaneous
  Country: US (occurrence: US)
  Receive Date: 20190812
  Receipt Date: 20190812
  Transmission Date: 20191004
  Serious: No
  Sender: FDA-Public Use
  Company Number: US-SA-2019SA218428

PATIENT
  Sex: Female

DRUGS (8)
  1. AUBAGIO [Suspect]
     Active Substance: TERIFLUNOMIDE
     Dosage: 1 DF, QD
     Route: 048
  2. VOLTAREN [DICLOFENAC] [Concomitant]
     Active Substance: DICLOFENAC SODIUM
  3. AMOXICILLIN. [Concomitant]
     Active Substance: AMOXICILLIN
  4. TRAVATAN Z [Concomitant]
     Active Substance: TRAVOPROST
  5. LOVAZA [Concomitant]
     Active Substance: OMEGA-3-ACID ETHYL ESTERS
  6. METHYLPREDNISOLONE. [Concomitant]
     Active Substance: METHYLPREDNISOLONE
  7. PREDNISOLONE. [Concomitant]
     Active Substance: PREDNISOLONE
  8. CYMBALTA [Concomitant]
     Active Substance: DULOXETINE HYDROCHLORIDE
     Dosage: CPE 30 MG

REACTIONS (2)
  - Pyrexia [Not Recovered/Not Resolved]
  - Product dose omission [Not Recovered/Not Resolved]
